FAERS Safety Report 12143118 (Version 2)
Quarter: 2016Q2

REPORT INFORMATION
  Report Type: Spontaneous
  Country: US (occurrence: US)
  Receive Date: 20160303
  Receipt Date: 20160503
  Transmission Date: 20160815
  Serious: No
  Sender: FDA-Public Use
  Company Number: US-ROCHE-1719498

PATIENT
  Age: 58 Year
  Sex: Female
  Weight: 77.63 kg

DRUGS (2)
  1. TAMIFLU [Suspect]
     Active Substance: OSELTAMIVIR PHOSPHATE
     Indication: INFLUENZA
     Route: 048
     Dates: start: 20160212, end: 20160217
  2. PROMETHAZINE [Concomitant]
     Active Substance: PROMETHAZINE\PROMETHAZINE HYDROCHLORIDE
     Indication: VOMITING
     Route: 054
     Dates: start: 20160223

REACTIONS (12)
  - Vision blurred [Unknown]
  - Cold sweat [Recovered/Resolved]
  - Headache [Recovered/Resolved]
  - Hyperacusis [Recovered/Resolved]
  - Cough [Not Recovered/Not Resolved]
  - Faeces discoloured [Recovered/Resolved]
  - Anosmia [Recovered/Resolved]
  - Ageusia [Recovered/Resolved]
  - Photosensitivity reaction [Recovered/Resolved]
  - Asthenia [Recovered/Resolved]
  - Dizziness [Recovered/Resolved]
  - Fatigue [Recovered/Resolved]

NARRATIVE: CASE EVENT DATE: 20160212
